FAERS Safety Report 7991859-X (Version None)
Quarter: 2011Q4

REPORT INFORMATION
  Report Type: 
  Country: None (occurrence: None)
  Receive Date: 20111219
  Receipt Date: 20111212
  Transmission Date: 20120403
  Serious: Yes (Other)
  Sender: FDA-Public Use
  Company Number: PHEH2011US05212

PATIENT
  Sex: Female
  Weight: 100.68 kg

DRUGS (14)
  1. LOSARTAN POTASSIUM [Concomitant]
     Dosage: 50 MG, DAILY
     Route: 048
     Dates: start: 20110926
  2. LOVAZA [Concomitant]
     Dosage: 1000 MG, DAILY
     Route: 048
     Dates: start: 20110926
  3. ASPIRIN [Concomitant]
     Dosage: 325 MG, DAILY
     Route: 048
     Dates: start: 20110926
  4. DIAZEPAM [Concomitant]
     Indication: TREMOR
     Dosage: 5 MG, PRN UP TO TID
     Dates: start: 20110926
  5. NIACIN [Concomitant]
     Dosage: 1000 MG, DAILY
     Route: 048
     Dates: start: 20110926
  6. GILENYA [Suspect]
     Indication: MULTIPLE SCLEROSIS
     Dosage: 0.5 MG, DAILY
     Route: 048
     Dates: start: 20110926
  7. CELEXA [Concomitant]
     Dosage: 20 MG, DAILY
     Route: 048
     Dates: start: 20110926
  8. PRAVASTATIN SODIUM [Concomitant]
     Dosage: 40 MG, DAILY
     Route: 048
     Dates: start: 20110926
  9. CARBAMAZEPINE [Concomitant]
     Dosage: 100 MG, BID
     Route: 048
     Dates: start: 20110926
  10. BACLOFEN [Concomitant]
     Dosage: 20 MG, TID
     Route: 048
     Dates: start: 20110926
  11. SYNTHROID [Concomitant]
     Dosage: 125 UG, DAILY
     Route: 048
     Dates: start: 20110926
  12. CELEBREX [Concomitant]
     Dosage: 200 MG, DAILY
     Route: 048
     Dates: start: 20110926
  13. LYRICA [Concomitant]
     Dosage: 75 MG, BID
     Route: 048
     Dates: start: 20110926
  14. WELLBUTRIN XL [Concomitant]
     Dosage: 300 MG, DAILY
     Route: 048
     Dates: start: 20110926

REACTIONS (11)
  - DIZZINESS POSTURAL [None]
  - FEELING ABNORMAL [None]
  - PAIN IN EXTREMITY [None]
  - FATIGUE [None]
  - FEELING HOT [None]
  - HEART RATE DECREASED [None]
  - SOMNOLENCE [None]
  - MUSCLE SPASMS [None]
  - HEADACHE [None]
  - BLOOD PRESSURE DECREASED [None]
  - PALPITATIONS [None]
